FAERS Safety Report 6213873-7 (Version None)
Quarter: 2009Q2

REPORT INFORMATION
  Report Type: 
  Country: None (occurrence: None)
  Receive Date: 20090602
  Receipt Date: 20090602
  Transmission Date: 20091009
  Serious: No
  Sender: FDA-Public Use
  Company Number: None

PATIENT
  Age: 60 Year
  Sex: Female
  Weight: 81.6475 kg

DRUGS (1)
  1. COGENTIN [Suspect]
     Indication: AKATHISIA
     Dosage: SMALLEST DOSAGE 3X/DAY PO
     Route: 048
     Dates: start: 20081201, end: 20090102

REACTIONS (9)
  - ANGER [None]
  - APHASIA [None]
  - COGNITIVE DISORDER [None]
  - CONFUSIONAL STATE [None]
  - DIZZINESS [None]
  - HEADACHE [None]
  - IMPAIRED WORK ABILITY [None]
  - MEMORY IMPAIRMENT [None]
  - TREMOR [None]
